FAERS Safety Report 5450980-0 (Version None)
Quarter: 2007Q3

REPORT INFORMATION
  Report Type: 
  Country: None (occurrence: None)
  Receive Date: 20070913
  Receipt Date: 20070911
  Transmission Date: 20080115
  Serious: Yes (Death)
  Sender: FDA-Public Use
  Company Number: DE-JNJFOC-20070804747

PATIENT
  Age: 43 Year
  Sex: Male

DRUGS (1)
  1. HALDOL [Suspect]
     Indication: DRUG USE FOR UNKNOWN INDICATION
     Route: 048

REACTIONS (5)
  - ACCIDENTAL EXPOSURE [None]
  - DRUG DIVERSION [None]
  - GAIT DISTURBANCE [None]
  - MASKED FACIES [None]
  - OVERDOSE [None]
